FAERS Safety Report 6576617-5 (Version None)
Quarter: 2010Q1

REPORT INFORMATION
  Report Type: 
  Country: None (occurrence: None)
  Receive Date: 20100210
  Receipt Date: 20100201
  Transmission Date: 20100710
  Serious: Yes (Hospitalization)
  Sender: FDA-Public Use
  Company Number: FR-ASTRAZENECA-2010SE05052

PATIENT
  Age: 29696 Day
  Sex: Female

DRUGS (7)
  1. NEXIUM [Suspect]
     Route: 048
  2. LASIX [Suspect]
     Indication: HYPERTENSION
     Route: 048
  3. PREVISCAN [Suspect]
     Indication: ATRIAL FIBRILLATION
     Route: 048
     Dates: end: 20081211
  4. CORDARONE [Suspect]
     Indication: ARRHYTHMIA
     Route: 048
  5. STABLON [Suspect]
     Indication: DEPRESSION
     Route: 048
  6. DIFFU K [Concomitant]
     Indication: HYPOKALAEMIA
     Route: 048
  7. SERESTA [Concomitant]
     Indication: ANXIETY
     Route: 048

REACTIONS (1)
  - INTERNATIONAL NORMALISED RATIO INCREASED [None]
